FAERS Safety Report 24703314 (Version 1)
Quarter: 2024Q4

REPORT INFORMATION
  Report Type: Report from Study
  Country: DE (occurrence: DE)
  Receive Date: 20241205
  Receipt Date: 20241205
  Transmission Date: 20250114
  Serious: Yes (Hospitalization)
  Sender: ABBVIE
  Company Number: DE-ABBVIE-6027854

PATIENT
  Age: 76 Year
  Sex: Female

DRUGS (2)
  1. FOSCARBIDOPA\FOSLEVODOPA [Suspect]
     Active Substance: FOSCARBIDOPA\FOSLEVODOPA
     Indication: Parkinson^s disease
     Dosage: LAST ADMIN: 2024?.DOSAGE: CRN: 0.15 ML/H; CR: 0.16 ML/H; CRH: 0.17 ML/H; ED: 0.15 ML
     Route: 058
     Dates: start: 20241111
  2. FOSCARBIDOPA\FOSLEVODOPA [Suspect]
     Active Substance: FOSCARBIDOPA\FOSLEVODOPA
     Dosage: ADJUSTED DOSAGE: CRN: 0.16 ML/H; CR: 0.19 ML/H; CRH: 0.20 ML/H; ED: 0.15 ML
     Route: 058
     Dates: start: 2024

REACTIONS (1)
  - Hypokinesia [Unknown]

NARRATIVE: CASE EVENT DATE: 20240101
